FAERS Safety Report 5001655-3 (Version None)
Quarter: 2006Q2

REPORT INFORMATION
  Report Type: 
  Country: None (occurrence: None)
  Receive Date: 20060511
  Receipt Date: 20060511
  Transmission Date: 20061013
  Serious: Yes (Hospitalization)
  Sender: FDA-Public Use
  Company Number: None

PATIENT
  Sex: Female
  Weight: 74.8435 kg

DRUGS (3)
  1. INFLIXIMAB,   CENTOCOR, INC. [Suspect]
     Indication: CROHN'S DISEASE
     Dosage: 400MG   0/2/6WKS   IV
     Route: 042
     Dates: start: 20051222
  2. INFLIXIMAB,   CENTOCOR, INC. [Suspect]
     Indication: CROHN'S DISEASE
     Dosage: 400MG   0/2/6WKS   IV
     Route: 042
     Dates: start: 20060104
  3. INFLIXIMAB,   CENTOCOR, INC. [Suspect]
     Indication: CROHN'S DISEASE
     Dosage: 400MG   0/2/6WKS   IV
     Route: 042
     Dates: start: 20060201

REACTIONS (4)
  - COMPUTERISED TOMOGRAM ABNORMAL [None]
  - DYSPNOEA [None]
  - LUNG INFILTRATION [None]
  - PNEUMONITIS [None]
